FAERS Safety Report 24377451 (Version 1)
Quarter: 2024Q3

REPORT INFORMATION
  Report Type: Spontaneous
  Country: JP (occurrence: JP)
  Receive Date: 20240930
  Receipt Date: 20240930
  Transmission Date: 20241016
  Serious: Yes (Hospitalization, Other)
  Sender: ABBVIE
  Company Number: JP-ABBVIE-5797011

PATIENT
  Age: 84 Year
  Sex: Male

DRUGS (2)
  1. VENCLEXTA [Suspect]
     Active Substance: VENETOCLAX
     Indication: Acute myeloid leukaemia
     Dosage: FORM STRENGTH: 100 MILLIGRAM
     Route: 048
     Dates: start: 20240603
  2. AZACITIDINE [Suspect]
     Active Substance: AZACITIDINE
     Indication: Acute myeloid leukaemia
     Dosage: 75 MG/M2
     Route: 058
     Dates: start: 20240603

REACTIONS (4)
  - Acute kidney injury [Unknown]
  - Tumour lysis syndrome [Recovered/Resolved]
  - Blood potassium increased [Recovered/Resolved]
  - Urine output decreased [Recovered/Resolved]

NARRATIVE: CASE EVENT DATE: 20240601
